FAERS Safety Report 9603013 (Version 3)
Quarter: 2013Q4

REPORT INFORMATION
  Report Type: Report from Study
  Country: DE (occurrence: DE)
  Receive Date: 20131007
  Receipt Date: 20131028
  Transmission Date: 20140711
  Serious: Yes (Other)
  Sender: FDA-Public Use
  Company Number: DE-ACTELION-A-CH2013-89006

PATIENT
  Age: 13 Year
  Sex: Female
  Weight: 31.3 kg

DRUGS (3)
  1. ZAVESCA [Suspect]
     Indication: NIEMANN-PICK DISEASE
     Dosage: 100 MG, TID
     Route: 048
     Dates: start: 201005
  2. ZAVESCA [Suspect]
     Dosage: 200 MG, TID
     Route: 048
     Dates: start: 20111019
  3. COLIFOAM [Concomitant]
     Indication: NIEMANN-PICK DISEASE

REACTIONS (5)
  - Convulsion [Unknown]
  - Diarrhoea [Unknown]
  - Neuropathy peripheral [Unknown]
  - Tremor [Unknown]
  - Drug ineffective [Unknown]
